FAERS Safety Report 6623223-X (Version None)
Quarter: 2010Q1

REPORT INFORMATION
  Report Type: 
  Country: None (occurrence: None)
  Receive Date: 20100310
  Receipt Date: 20100301
  Transmission Date: 20100710
  Serious: Yes (Hospitalization)
  Sender: FDA-Public Use
  Company Number: DE-JNJFOC-20100300438

PATIENT
  Age: 75 Year
  Sex: Male
  Weight: 65.9 kg

DRUGS (8)
  1. RISPERDAL [Suspect]
     Indication: DRUG USE FOR UNKNOWN INDICATION
     Route: 048
  2. RISPERDAL [Suspect]
     Route: 048
  3. CIPRAMIL [Suspect]
     Indication: DRUG USE FOR UNKNOWN INDICATION
     Route: 048
     Dates: start: 20090710, end: 20090803
  4. ERGENYL [Suspect]
     Indication: DRUG USE FOR UNKNOWN INDICATION
     Route: 048
     Dates: start: 20090723, end: 20090827
  5. ERGENYL [Suspect]
     Route: 048
     Dates: start: 20090723, end: 20090827
  6. DOMINAL [Suspect]
     Indication: DRUG USE FOR UNKNOWN INDICATION
     Route: 048
     Dates: start: 20090729, end: 20090827
  7. DOMINAL [Suspect]
     Route: 048
     Dates: start: 20090729, end: 20090827
  8. MAGNETRANS [Concomitant]
     Indication: DRUG USE FOR UNKNOWN INDICATION
     Route: 048
     Dates: start: 20090729, end: 20090827

REACTIONS (1)
  - HYPONATRAEMIA [None]
